FAERS Safety Report 4936360-2 (Version None)
Quarter: 2006Q1

REPORT INFORMATION
  Report Type: 
  Country: None (occurrence: None)
  Receive Date: 20060302
  Receipt Date: 20060210
  Transmission Date: 20060701
  Serious: Yes (Other)
  Sender: FDA-Public Use
  Company Number: US200602002454

PATIENT
  Sex: Female

DRUGS (3)
  1. INSULIN HUMAN (INSULIN HUMAN PROINSULIN 2) [Suspect]
     Indication: DIABETES MELLITUS
  2. ILETIN [Suspect]
     Indication: DIABETES MELLITUS
     Dosage: 48 U EACH MORNNG
  3. ILETIN [Suspect]
     Indication: DIABETES MELLITUS
     Dosage: AS NEEDED;  48 U, EACH EVENING

REACTIONS (2)
  - EYE HAEMORRHAGE [None]
  - UPPER LIMB FRACTURE [None]
